FAERS Safety Report 8272678-6 (Version None)
Quarter: 2012Q2

REPORT INFORMATION
  Report Type: 
  Country: None (occurrence: None)
  Receive Date: 20120411
  Receipt Date: 20120328
  Transmission Date: 20120825
  Serious: Yes (Other)
  Sender: FDA-Public Use
  Company Number: JP-BAXTER-2012BAX001864

PATIENT
  Age: 4 Year
  Sex: Male

DRUGS (1)
  1. BUMINATE 25% [Suspect]
     Indication: EXCHANGE BLOOD TRANSFUSION
     Route: 042

REACTIONS (1)
  - SHOCK [None]
